FAERS Safety Report 4760103-9 (Version None)
Quarter: 2005Q3

REPORT INFORMATION
  Report Type: 
  Country: None (occurrence: None)
  Receive Date: 20050902
  Receipt Date: 20050420
  Transmission Date: 20060218
  Serious: No
  Sender: FDA-Public Use
  Company Number: US-GLAXOSMITHKLINE-A0555057A

PATIENT

DRUGS (4)
  1. REQUIP [Suspect]
     Indication: PARKINSON'S DISEASE
     Dosage: .25MG THREE TIMES PER DAY
     Route: 048
  2. DYNACIRC [Concomitant]
  3. SYNTHROID [Concomitant]
  4. SINEMET [Concomitant]

REACTIONS (1)
  - MOTOR DYSFUNCTION [None]
